FAERS Safety Report 17120895 (Version 1)
Quarter: 2019Q4

REPORT INFORMATION
  Report Type: Spontaneous
  Country: US (occurrence: US)
  Receive Date: 20191206
  Receipt Date: 20191206
  Transmission Date: 20200122
  Serious: No
  Sender: FDA-Public Use
  Company Number: US-UCBSA-2017028658

PATIENT
  Sex: Female
  Weight: 55.33 kg

DRUGS (1)
  1. KEPPRA [Suspect]
     Active Substance: LEVETIRACETAM
     Indication: GENERALISED TONIC-CLONIC SEIZURE
     Dosage: 1000 MG, 3X/DAY (TID)

REACTIONS (2)
  - Intentional product misuse [Unknown]
  - Diarrhoea [Not Recovered/Not Resolved]
